FAERS Safety Report 9117263 (Version 1)
Quarter: 2013Q1

REPORT INFORMATION
  Report Type: Spontaneous
  Country: FR (occurrence: FR)
  Receive Date: 20130225
  Receipt Date: 20130225
  Transmission Date: 20140127
  Serious: Yes (Other)
  Sender: FDA-Public Use
  Company Number: FR-JNJFOC-20130211595

PATIENT
  Age: 66 Year
  Sex: Male

DRUGS (6)
  1. XARELTO [Suspect]
     Indication: CEREBROVASCULAR ACCIDENT PROPHYLAXIS
     Route: 048
     Dates: start: 20121212, end: 20130124
  2. XARELTO [Suspect]
     Indication: ATRIAL FIBRILLATION
     Route: 048
     Dates: start: 20121212, end: 20130124
  3. FLECAINE [Concomitant]
     Route: 048
     Dates: start: 20130103
  4. AMIODARONE [Concomitant]
     Route: 048
     Dates: start: 20121212, end: 20130103
  5. INNOHEP [Concomitant]
     Route: 058
     Dates: start: 20121210, end: 20121212
  6. COUMADINE [Concomitant]
     Route: 048
     Dates: start: 20121210, end: 20121212

REACTIONS (1)
  - Venous thrombosis [Recovering/Resolving]
